FAERS Safety Report 21650505 (Version 1)
Quarter: 2022Q4

REPORT INFORMATION
  Report Type: Spontaneous
  Country: US (occurrence: None)
  Receive Date: 20221124
  Receipt Date: 20221124
  Transmission Date: 20230112
  Serious: Yes (Life-Threatening)
  Sender: FDA-Public Use
  Company Number: None

PATIENT
  Age: 64 Year
  Sex: Male
  Weight: 66.5 kg

DRUGS (1)
  1. FOSAPREPITANT [Suspect]
     Active Substance: FOSAPREPITANT
     Indication: Prophylaxis of nausea and vomiting
     Dosage: FREQUENCY : ONCE;?
     Route: 042
     Dates: start: 20221121, end: 20221121

REACTIONS (4)
  - Adverse drug reaction [None]
  - Loss of consciousness [None]
  - Respiratory arrest [None]
  - Pulse abnormal [None]

NARRATIVE: CASE EVENT DATE: 20221121
